FAERS Safety Report 18511796 (Version 2)
Quarter: 2020Q4

REPORT INFORMATION
  Report Type: Report from Study
  Country: None (occurrence: DE)
  Receive Date: 20201117
  Receipt Date: 20201118
  Transmission Date: 20210114
  Serious: Yes (Death, Other)
  Sender: FDA-Public Use
  Company Number: DE-ABBVIE-20K-062-3650710-00

PATIENT
  Sex: Male

DRUGS (3)
  1. VENCLYXTO [Suspect]
     Active Substance: VENETOCLAX
     Indication: CHRONIC LYMPHOCYTIC LEUKAEMIA
     Route: 048
     Dates: start: 20190319
  2. VIDAZA [Concomitant]
     Active Substance: AZACITIDINE
     Indication: PRODUCT USED FOR UNKNOWN INDICATION
  3. VENCLYXTO [Suspect]
     Active Substance: VENETOCLAX
     Indication: ACUTE MYELOID LEUKAEMIA

REACTIONS (16)
  - Renal failure [Fatal]
  - Pyrexia [Unknown]
  - Somnolence [Unknown]
  - Off label use [Unknown]
  - Weight decreased [Unknown]
  - Blood viscosity decreased [Unknown]
  - Pulmonary mycosis [Unknown]
  - Cough [Unknown]
  - Infection [Unknown]
  - Abdominal pain upper [Unknown]
  - Fatigue [Unknown]
  - Visual impairment [Unknown]
  - Incorrect dosage administered [Unknown]
  - Drug ineffective [Unknown]
  - Eye haemorrhage [Unknown]
  - Thrombosis [Unknown]

NARRATIVE: CASE EVENT DATE: 2019
